FAERS Safety Report 15918215 (Version 2)
Quarter: 2019Q1

REPORT INFORMATION
  Report Type: Spontaneous
  Country: CA (occurrence: CA)
  Receive Date: 20190205
  Receipt Date: 20190211
  Transmission Date: 20190417
  Serious: Yes (Other)
  Sender: FDA-Public Use
  Company Number: CA-FERRINGPH-2019FE00394

PATIENT

DRUGS (1)
  1. CERVIDIL [Suspect]
     Active Substance: DINOPROSTONE
     Indication: LABOUR INDUCTION
     Dosage: 10 MG, ONCE/SINGLE
     Route: 067
     Dates: start: 20190113, end: 20190114

REACTIONS (5)
  - Muscular weakness [Recovered/Resolved]
  - Influenza like illness [Unknown]
  - Pain in extremity [Unknown]
  - Disseminated intravascular coagulation [Recovered/Resolved]
  - Product monitoring error [Recovered/Resolved]

NARRATIVE: CASE EVENT DATE: 201901
